FAERS Safety Report 4765043-7 (Version None)
Quarter: 2005Q3

REPORT INFORMATION
  Report Type: 
  Country: None (occurrence: None)
  Receive Date: 20050907
  Receipt Date: 20050825
  Transmission Date: 20060218
  Serious: Yes (Other)
  Sender: FDA-Public Use
  Company Number: 2005120434

PATIENT
  Age: 74 Year
  Sex: Female
  Weight: 89.8122 kg

DRUGS (3)
  1. ZITHROMAX [Suspect]
     Indication: PYREXIA
     Dosage: 250 MG (250 MG, DAILY INTERVAL:  EVERY DAY), ORAL
     Route: 048
     Dates: start: 20050729
  2. ALPHA-LIPOIC ACID (THIOCTIC ACID) [Concomitant]
  3. RED YEAST RICE (RED YEAST RICE) [Concomitant]

REACTIONS (2)
  - DYSGEUSIA [None]
  - WEIGHT DECREASED [None]
